FAERS Safety Report 9100990 (Version 4)
Quarter: 2013Q1

REPORT INFORMATION
  Report Type: Report from Study
  Country: ES (occurrence: ES)
  Receive Date: 20130215
  Receipt Date: 20130325
  Transmission Date: 20140127
  Serious: Yes (Death, Life-Threatening, Hospitalization, Other)
  Sender: FDA-Public Use
  Company Number: ES-GENZYME-MOZO-1000810

PATIENT
  Age: 44 Year
  Sex: Female
  Weight: 56 kg

DRUGS (9)
  1. MOZOBIL [Suspect]
     Indication: ACUTE MYELOID LEUKAEMIA RECURRENT
     Dosage: 6.7 MG, BID; INDUCTION PHASE (CYCLE 1)
     Route: 042
     Dates: start: 20130104, end: 20130107
  2. FLUDARA [Suspect]
     Indication: ACUTE MYELOID LEUKAEMIA RECURRENT
     Dosage: 48 MG, QD; INDUCTION PHASE (CYCLE 1)
     Route: 042
     Dates: start: 20130104, end: 20130107
  3. IDARUBICIN [Suspect]
     Indication: ACUTE MYELOID LEUKAEMIA RECURRENT
     Dosage: 16 MG, QD; INDUCTION PHASE (CYCLE 1)
     Route: 042
     Dates: start: 20130104, end: 20130106
  4. CYTARABINE [Suspect]
     Indication: ACUTE MYELOID LEUKAEMIA RECURRENT
     Dosage: 3200 MG, QD; INDUCTION PHASE (CYCLE 1)
     Route: 042
     Dates: start: 20130104, end: 20130107
  5. G-CSF [Suspect]
     Indication: ACUTE MYELOID LEUKAEMIA
     Dosage: 0.28 MG, QD; INDUCTION PHASE (CYCLE 1)
     Route: 058
     Dates: start: 20130104, end: 20130107
  6. PARACETAMOL [Concomitant]
     Indication: PYREXIA
     Dosage: 1 G, TID
     Route: 065
     Dates: start: 20121226
  7. SULFAMETHOXAZOLE W [Concomitant]
     Indication: ANTIFUNGAL PROPHYLAXIS
     Dosage: 800 MG, BID
     Route: 065
     Dates: start: 20120104
  8. FOLIC ACID [Concomitant]
     Indication: PROPHYLAXIS
     Dosage: 10 MG, QD
     Route: 065
     Dates: start: 20130104
  9. PANTOPRAZOLE [Concomitant]
     Indication: PROPHYLAXIS
     Dosage: 80 MG, QD
     Route: 065
     Dates: start: 20130104

REACTIONS (9)
  - Central nervous system fungal infection [Fatal]
  - Pulmonary haemorrhage [Fatal]
  - Convulsion [Fatal]
  - Lower respiratory tract infection fungal [Fatal]
  - Fungal infection [Fatal]
  - Infection [Fatal]
  - Cerebrovascular accident [Fatal]
  - Hyperglycaemia [Fatal]
  - Pain [Fatal]
